FAERS Safety Report 4422921-6 (Version None)
Quarter: 2004Q3

REPORT INFORMATION
  Report Type: 
  Country: None (occurrence: None)
  Receive Date: 20040806
  Receipt Date: 20040729
  Transmission Date: 20050211
  Serious: Yes (Death)
  Sender: FDA-Public Use
  Company Number: US-JNJFOC-20040800547

PATIENT
  Age: 52 Year
  Sex: Female

DRUGS (4)
  1. RISPERDAL [Suspect]
     Indication: SCHIZOPHRENIA
     Dosage: 3 MG, ORAL
     Route: 048
     Dates: start: 20010901, end: 20030201
  2. ZYRTEC [Concomitant]
  3. TOPAMAX (TOP0IRAMATE) [Concomitant]
  4. EFFEXOR [Concomitant]

REACTIONS (1)
  - CARDIAC FAILURE [None]
